FAERS Safety Report 6169379-7 (Version None)
Quarter: 2009Q2

REPORT INFORMATION
  Report Type: 
  Country: None (occurrence: None)
  Receive Date: 20090424
  Receipt Date: 20090416
  Transmission Date: 20091009
  Serious: Yes (Other)
  Sender: FDA-Public Use
  Company Number: 2009SP005869

PATIENT
  Age: 34 Year
  Sex: Female

DRUGS (1)
  1. AERINAZE (DESLORATADINE W/PSEUDOEPHEDRINE) [Suspect]
     Indication: SINUSITIS
     Dates: start: 20090301, end: 20090301

REACTIONS (2)
  - HALLUCINATION [None]
  - PSYCHOMOTOR HYPERACTIVITY [None]
